FAERS Safety Report 6627789-5 (Version None)
Quarter: 2010Q1

REPORT INFORMATION
  Report Type: 
  Country: None (occurrence: None)
  Receive Date: 20100308
  Receipt Date: 20090602
  Transmission Date: 20100710
  Serious: Yes (Hospitalization)
  Sender: FDA-Public Use
  Company Number: 1000006598

PATIENT
  Age: 64 Year
  Sex: Female
  Weight: 90 kg

DRUGS (4)
  1. NEBIVOLOL                  (NEBIVOLOL HYDROCHLORIDE) [Suspect]
     Indication: HYPERTENSION
     Dosage: 5 MG (5 MG, 1 IN 1 D), ORAL
     Route: 048
     Dates: start: 20090501, end: 20090502
  2. LISINOPRIL [Suspect]
     Indication: HYPERTENSION
     Dosage: 10 MG (10 MG, 1 IN 1 D), ORAL
     Dates: start: 20090406, end: 20090510
  3. CLARITIN [Concomitant]
  4. GLUCOSAMINE TABLETS [Concomitant]

REACTIONS (8)
  - BLOOD CREATINE PHOSPHOKINASE INCREASED [None]
  - BLOOD PRESSURE INCREASED [None]
  - DYSPNOEA [None]
  - ELECTROCARDIOGRAM ST-T CHANGE [None]
  - FLATULENCE [None]
  - LOW DENSITY LIPOPROTEIN INCREASED [None]
  - NON-CARDIAC CHEST PAIN [None]
  - RESPIRATORY RATE INCREASED [None]
